FAERS Safety Report 25529281 (Version 1)
Quarter: 2025Q3

REPORT INFORMATION
  Report Type: Spontaneous
  Country: JP (occurrence: JP)
  Receive Date: 20250708
  Receipt Date: 20250708
  Transmission Date: 20251020
  Serious: Yes (Other)
  Sender: JAZZ
  Company Number: JP-JAZZ PHARMACEUTICALS-2025-JP-016715

PATIENT
  Age: 74 Year
  Sex: Male

DRUGS (6)
  1. VYXEOS [Suspect]
     Active Substance: CYTARABINE\DAUNORUBICIN
     Indication: Acute myeloid leukaemia
     Route: 042
  2. VYXEOS [Suspect]
     Active Substance: CYTARABINE\DAUNORUBICIN
     Route: 042
  3. VYXEOS [Suspect]
     Active Substance: CYTARABINE\DAUNORUBICIN
     Route: 042
  4. CILNIDIPINE\VALSARTAN [Concomitant]
     Active Substance: CILNIDIPINE\VALSARTAN
     Indication: Product used for unknown indication
  5. DEXAMETHASONE [Concomitant]
     Active Substance: DEXAMETHASONE
     Indication: Prophylaxis of nausea and vomiting
  6. CEFEPIME [Concomitant]
     Active Substance: CEFEPIME HYDROCHLORIDE
     Indication: Product used for unknown indication

REACTIONS (9)
  - Oxygen saturation decreased [Unknown]
  - Respiratory disorder [Unknown]
  - Pyrexia [Recovered/Resolved]
  - Febrile neutropenia [Unknown]
  - Enterococcal bacteraemia [Unknown]
  - Clostridium difficile colitis [Unknown]
  - Cytarabine syndrome [Recovering/Resolving]
  - Therapeutic product effect incomplete [Unknown]
  - Therapeutic product effect incomplete [Unknown]
